FAERS Safety Report 21997489 (Version 5)
Quarter: 2024Q3

REPORT INFORMATION
  Report Type: Report from Study
  Country: US (occurrence: US)
  Receive Date: 20230216
  Receipt Date: 20240716
  Transmission Date: 20241017
  Serious: No
  Sender: ACADIA PHARMACEUTICALS
  Company Number: US-ACADIA PHARMACEUTICALS INC.-ACA-2023-PIM-000289

PATIENT
  Sex: Male

DRUGS (2)
  1. NUPLAZID [Suspect]
     Active Substance: PIMAVANSERIN TARTRATE
     Indication: Parkinson^s disease
     Dosage: 34 MILLIGRAM, QD
     Route: 048
     Dates: start: 202211
  2. NUPLAZID [Suspect]
     Active Substance: PIMAVANSERIN TARTRATE
     Dosage: 34 MILLIGRAM, QD
     Route: 048

REACTIONS (12)
  - Product dose omission issue [Recovered/Resolved]
  - Mental status changes [Unknown]
  - Arthralgia [Unknown]
  - Neck pain [Unknown]
  - Dizziness postural [Unknown]
  - Thinking abnormal [Unknown]
  - Abnormal dreams [Unknown]
  - Confusional state [Recovered/Resolved]
  - Drug ineffective [Unknown]
  - Fall [Unknown]
  - Confusional state [Unknown]
  - Hallucination [Unknown]
